FAERS Safety Report 9470777 (Version 3)
Quarter: 2015Q2

REPORT INFORMATION
  Report Type: Spontaneous
  Country: US (occurrence: US)
  Receive Date: 20130822
  Receipt Date: 20150612
  Transmission Date: 20150821
  Serious: Yes (Congenital Anomaly, Other)
  Sender: FDA-Public Use
  Company Number: US-ELI_LILLY_AND_COMPANY-US201308005422

PATIENT

DRUGS (8)
  1. TYLENOL [Concomitant]
     Active Substance: ACETAMINOPHEN
     Route: 064
  2. TERBUTALINE [Concomitant]
     Active Substance: TERBUTALINE
     Route: 064
  3. PROZAC [Suspect]
     Active Substance: FLUOXETINE HYDROCHLORIDE
     Dosage: 60 MG, UNKNOWN
     Route: 064
  4. PROVENTIL                          /00139501/ [Concomitant]
     Route: 064
  5. PROZAC [Suspect]
     Active Substance: FLUOXETINE HYDROCHLORIDE
     Indication: DEPRESSION
     Dosage: 40 MG, UNKNOWN
     Route: 064
  6. FLAGYL [Concomitant]
     Active Substance: METRONIDAZOLE\METRONIDAZOLE HYDROCHLORIDE
     Route: 064
  7. ANCEF [Concomitant]
     Active Substance: CEFAZOLIN SODIUM
     Route: 064
  8. PRENATABS RX [Concomitant]
     Active Substance: VITAMINS
     Route: 064

REACTIONS (5)
  - Craniosynostosis [Unknown]
  - Cleft palate [Unknown]
  - Pulmonary valve stenosis [Unknown]
  - Foetal exposure during pregnancy [Recovered/Resolved]
  - Cardiomegaly [Unknown]
